FAERS Safety Report 11990902 (Version 1)
Quarter: 2016Q1

REPORT INFORMATION
  Report Type: Spontaneous
  Country: US (occurrence: US)
  Receive Date: 20160202
  Receipt Date: 20160202
  Transmission Date: 20160526
  Serious: Yes (Death)
  Sender: FDA-Public Use
  Company Number: US-SPECTRUM PHARMACEUTICALS, INC.-16-F-US-00012

PATIENT
  Age: 49 Year
  Sex: Male

DRUGS (1)
  1. FUSILEV [Suspect]
     Active Substance: LEVOLEUCOVORIN CALCIUM
     Indication: COLON CANCER

REACTIONS (1)
  - Death [Fatal]

NARRATIVE: CASE EVENT DATE: 20151119
